FAERS Safety Report 11937811 (Version 1)
Quarter: 2016Q1

REPORT INFORMATION
  Report Type: Spontaneous
  Country: FR (occurrence: FR)
  Receive Date: 20160122
  Receipt Date: 20160122
  Transmission Date: 20160526
  Serious: Yes (Hospitalization, Other)
  Sender: FDA-Public Use
  Company Number: FR-PFIZER INC-2016022653

PATIENT
  Age: 89 Year
  Sex: Female

DRUGS (3)
  1. ZOPICLONE [Concomitant]
     Active Substance: ZOPICLONE
     Indication: SLEEP DISORDER
     Dosage: 7.5 MG, DAILY
     Route: 048
     Dates: end: 20151223
  2. LYRICA [Suspect]
     Active Substance: PREGABALIN
     Indication: NEURALGIA
     Dosage: 250 MG, 2X/DAY
     Route: 048
     Dates: start: 200611, end: 20151223
  3. TRAMADOL BASE [Concomitant]
     Active Substance: TRAMADOL
     Indication: NEURALGIA
     Dosage: 200 MG, 1X/DAY
     Route: 048
     Dates: start: 200801, end: 20151223

REACTIONS (11)
  - Transient ischaemic attack [Unknown]
  - Withdrawal syndrome [Recovered/Resolved]
  - Hypertension [Recovered/Resolved]
  - Language disorder [Unknown]
  - Aggression [Recovered/Resolved]
  - Vomiting [Unknown]
  - Confusional state [Recovered/Resolved]
  - Urinary retention [Recovered/Resolved]
  - Tachycardia [Recovered/Resolved]
  - Tremor [Recovered/Resolved]
  - Meningioma [Unknown]

NARRATIVE: CASE EVENT DATE: 20151223
